FAERS Safety Report 14861040 (Version 1)
Quarter: 2018Q2

REPORT INFORMATION
  Report Type: Report from Study
  Country: IT (occurrence: IT)
  Receive Date: 20180508
  Receipt Date: 20180508
  Transmission Date: 20180711
  Serious: Yes (Other)
  Sender: FDA-Public Use
  Company Number: IT-PFIZER INC-2018183588

PATIENT
  Age: 58 Year
  Sex: Male

DRUGS (11)
  1. DOXAZOSIN MESILATE [Suspect]
     Active Substance: DOXAZOSIN MESYLATE
     Dosage: 20 DF, SINGLE
     Route: 048
     Dates: start: 20170118, end: 20170118
  2. LAMICTAL [Suspect]
     Active Substance: LAMOTRIGINE
     Dosage: 5 DF, SINGLE
     Route: 048
     Dates: start: 20170118, end: 20170118
  3. PARIET [Concomitant]
     Active Substance: RABEPRAZOLE SODIUM
  4. CARDIRENE [Concomitant]
     Active Substance: ASPIRIN DL-LYSINE
  5. CALCIUM CARBONATE. [Concomitant]
     Active Substance: CALCIUM CARBONATE
  6. XERISTAR [Suspect]
     Active Substance: DULOXETINE HYDROCHLORIDE
     Dosage: 6 DF, SINGLE
     Route: 048
     Dates: start: 20170118, end: 20170118
  7. EUTIROX [Concomitant]
     Active Substance: LEVOTHYROXINE SODIUM
  8. ROCALTROL [Concomitant]
     Active Substance: CALCITRIOL
  9. ESKIM [Concomitant]
     Active Substance: OMEGA-3 FATTY ACIDS
  10. LAMICTAL [Concomitant]
     Active Substance: LAMOTRIGINE
     Dosage: UNK
  11. LASIX [Concomitant]
     Active Substance: FUROSEMIDE

REACTIONS (2)
  - Sopor [Recovering/Resolving]
  - Intentional overdose [Unknown]

NARRATIVE: CASE EVENT DATE: 20170119
